FAERS Safety Report 8060080-1 (Version None)
Quarter: 2012Q1

REPORT INFORMATION
  Report Type: 
  Country: None (occurrence: None)
  Receive Date: 20120120
  Receipt Date: 20120109
  Transmission Date: 20120608
  Serious: Yes (Other)
  Sender: FDA-Public Use
  Company Number: CA-MERCK-1201USA01002

PATIENT
  Age: 63 Year
  Sex: Male
  Weight: 102 kg

DRUGS (5)
  1. ALFUZOSIN HCL [Concomitant]
     Route: 065
  2. LIPITOR [Concomitant]
     Route: 065
  3. SERC [Concomitant]
     Route: 065
  4. ATACAND [Concomitant]
     Route: 065
  5. PROSCAR [Suspect]
     Route: 048

REACTIONS (3)
  - SLEEP DISORDER [None]
  - DEPRESSION [None]
  - MOOD ALTERED [None]
